FAERS Safety Report 23439648 (Version 1)
Quarter: 2024Q1

REPORT INFORMATION
  Report Type: Spontaneous
  Country: ZA (occurrence: ZA)
  Receive Date: 20240124
  Receipt Date: 20240124
  Transmission Date: 20240410
  Serious: Yes (Death, Other)
  Sender: FDA-Public Use
  Company Number: ZA-EPICPHARMA-ZA-2024EPCLIT00112

PATIENT
  Sex: Female

DRUGS (1)
  1. TRANEXAMIC ACID [Suspect]
     Active Substance: TRANEXAMIC ACID
     Indication: Product used for unknown indication
     Route: 037

REACTIONS (3)
  - Maternal death [Fatal]
  - Accidental exposure to product [Unknown]
  - Incorrect route of product administration [Unknown]
